FAERS Safety Report 4291392-5 (Version None)
Quarter: 2004Q1

REPORT INFORMATION
  Report Type: 
  Country: None (occurrence: None)
  Receive Date: 20040211
  Receipt Date: 20040204
  Transmission Date: 20041129
  Serious: Yes (Other)
  Sender: FDA-Public Use
  Company Number: PHBS2004US01763

PATIENT
  Age: 70 Year
  Sex: Female

DRUGS (1)
  1. PAMIDRONATE DISODIUM [Suspect]
     Indication: METASTASES TO BONE
     Dosage: 90 MG, QMO
     Dates: start: 20000601, end: 20010501

REACTIONS (7)
  - BLOOD CREATININE INCREASED [None]
  - DIALYSIS [None]
  - GLOMERULONEPHRITIS FOCAL [None]
  - HYPOALBUMINAEMIA [None]
  - NEPHROTIC SYNDROME [None]
  - PROTEINURIA [None]
  - RENAL FAILURE CHRONIC [None]
